FAERS Safety Report 4684739-9 (Version None)
Quarter: 2005Q2

REPORT INFORMATION
  Report Type: 
  Country: None (occurrence: None)
  Receive Date: 20050603
  Receipt Date: 20050524
  Transmission Date: 20051028
  Serious: Yes (Other)
  Sender: FDA-Public Use
  Company Number: 2005079864

PATIENT
  Age: 45 Year
  Weight: 100 kg

DRUGS (7)
  1. LYRICA [Suspect]
     Indication: PAIN
     Dosage: 300 MG (150 MG, 2 IN 1 D), ORAL
     Route: 048
     Dates: start: 20050419
  2. WARFARIN SODIUM [Suspect]
     Indication: ILL-DEFINED DISORDER
     Dosage: (1 IN 1 D),
  3. TRAMADOL HCL [Concomitant]
  4. CODEINE SUL TAB [Concomitant]
  5. LANSOPRAZOLE [Concomitant]
  6. SERTRALINE HCL [Concomitant]
  7. GABAPENTIN [Concomitant]

REACTIONS (2)
  - COAGULATION TIME PROLONGED [None]
  - DRUG INTERACTION [None]
